FAERS Safety Report 4832556-9 (Version None)
Quarter: 2005Q4

REPORT INFORMATION
  Report Type: 
  Country: None (occurrence: None)
  Receive Date: 20051115
  Receipt Date: 20051108
  Transmission Date: 20060501
  Serious: Yes (Life-Threatening, Hospitalization)
  Sender: FDA-Public Use
  Company Number: 200512402BWH

PATIENT
  Age: 72 Year
  Sex: Female
  Weight: 79.8331 kg

DRUGS (25)
  1. TRASYLOL [Suspect]
     Indication: CORONARY ARTERY SURGERY
     Dosage: 10000 KIU, ONCE, INTRAVENOUS; 2000000 KIU, ONCE, INTRAVENOUS
     Route: 042
     Dates: start: 20051026
  2. TRASYLOL [Suspect]
     Indication: MITRAL VALVE REPAIR
     Dosage: 10000 KIU, ONCE, INTRAVENOUS; 2000000 KIU, ONCE, INTRAVENOUS
     Route: 042
     Dates: start: 20051026
  3. TRASYLOL [Suspect]
     Indication: CORONARY ARTERY SURGERY
     Dosage: 10000 KIU, ONCE, INTRAVENOUS; 2000000 KIU, ONCE, INTRAVENOUS
     Route: 042
     Dates: start: 20051026
  4. TRASYLOL [Suspect]
     Indication: MITRAL VALVE REPAIR
     Dosage: 10000 KIU, ONCE, INTRAVENOUS; 2000000 KIU, ONCE, INTRAVENOUS
     Route: 042
     Dates: start: 20051026
  5. COZAAR [Concomitant]
  6. NIACIN [Concomitant]
  7. DILTIAZEM ^STADA^ [Concomitant]
  8. PRILOSEC [Concomitant]
  9. ALEVE [Concomitant]
  10. TRIAMCINOLONE [Concomitant]
  11. HEPARIN [Concomitant]
  12. PROTAMINE [Concomitant]
  13. LEVOPHED [Concomitant]
  14. DOBUTAMINE [Concomitant]
  15. MILRINONE [Concomitant]
  16. LIDOCAINE [Concomitant]
  17. CALCIUM CHLORIDE [Concomitant]
  18. SODIUM BICARBONATE [Concomitant]
  19. NEOSYNEPHRINE [Concomitant]
  20. MAGNESIUM SULFATE [Concomitant]
  21. VANCOMYCIN [Concomitant]
  22. PLEGISOL [Concomitant]
  23. FENTANYL [Concomitant]
  24. PROPOFOL [Concomitant]
  25. NORMOSOL R [Concomitant]

REACTIONS (12)
  - CEREBROVASCULAR ACCIDENT [None]
  - CORONARY ARTERY THROMBOSIS [None]
  - DYSPHAGIA [None]
  - DYSPHASIA [None]
  - ELECTROCARDIOGRAM ST SEGMENT ELEVATION [None]
  - GRAFT THROMBOSIS [None]
  - HEMIPARESIS [None]
  - HEPATIC FAILURE [None]
  - PERIPHERAL VASCULAR DISORDER [None]
  - POST PROCEDURAL COMPLICATION [None]
  - VASCULAR PROCEDURE COMPLICATION [None]
  - VENTRICULAR DYSFUNCTION [None]
